FAERS Safety Report 10577803 (Version 1)
Quarter: 2014Q4

REPORT INFORMATION
  Report Type: Spontaneous
  Country: US (occurrence: US)
  Receive Date: 20141111
  Receipt Date: 20141111
  Transmission Date: 20150529
  Serious: No
  Sender: FDA-Public Use
  Company Number: US-MALLINCKRODT-T201402458

PATIENT
  Age: 71 Year
  Sex: Male

DRUGS (2)
  1. PENNSAID [Suspect]
     Active Substance: DICLOFENAC SODIUM
     Indication: NEURALGIA
     Dosage: 20 GTT, TID
     Route: 061
     Dates: end: 201405
  2. PENNSAID [Suspect]
     Active Substance: DICLOFENAC SODIUM
     Indication: NEURALGIA
     Dosage: 2 PUMPS, BID
     Route: 061
     Dates: start: 201405, end: 201406

REACTIONS (5)
  - Application site pain [Recovered/Resolved]
  - Product use issue [Recovered/Resolved]
  - Application site rash [Recovered/Resolved]
  - Product quality issue [Recovered/Resolved]
  - Application site pruritus [Recovered/Resolved]

NARRATIVE: CASE EVENT DATE: 201405
